FAERS Safety Report 15844255 (Version 2)
Quarter: 2019Q4

REPORT INFORMATION
  Report Type: Report from Study
  Country: CA (occurrence: CA)
  Receive Date: 20190118
  Receipt Date: 20191009
  Transmission Date: 20200122
  Serious: Yes (Other)
  Sender: FDA-Public Use
  Company Number: CA-PFIZER INC-2019022485

PATIENT

DRUGS (11)
  1. RITUXIMAB. [Suspect]
     Active Substance: RITUXIMAB
     Indication: MANTLE CELL LYMPHOMA
     Dosage: 375 MG/M2, WEEKLY (WEEKLY FOR FOUR DOSES AT 3 AND 9 MONTHS, OR ONCE EVERY 3 MONTHS FOR EIGHT DOSES)
  2. CYCLOPHOSPHAMIDE. [Suspect]
     Active Substance: CYCLOPHOSPHAMIDE
     Dosage: 2000 MG/M2, DAY 1
  3. PREDNISONE. [Suspect]
     Active Substance: PREDNISONE
     Indication: MANTLE CELL LYMPHOMA
     Dosage: UNK, CYCLIC (FIRST-LINE INDUCTION THERAPY, 6 CYCLES)
  4. CYTARABINE. [Suspect]
     Active Substance: CYTARABINE
     Indication: MANTLE CELL LYMPHOMA
     Dosage: UNK, CYCLIC (FIRST-LINE INDUCTION THERAPY, 6 CYCLES)
  5. FILGRASTIM [Concomitant]
     Active Substance: FILGRASTIM
     Indication: MANTLE CELL LYMPHOMA
     Dosage: 10 UG/KG, DAILY (STARTING ON DAY 6)
  6. CYCLOPHOSPHAMIDE. [Suspect]
     Active Substance: CYCLOPHOSPHAMIDE
     Indication: MANTLE CELL LYMPHOMA
     Dosage: UNK, CYCLIC (FIRST-LINE INDUCTION THERAPY, 6 CYCLES)
  7. DEXAMETHASONE. [Suspect]
     Active Substance: DEXAMETHASONE
     Indication: MANTLE CELL LYMPHOMA
     Dosage: UNK, CYCLIC (FIRST-LINE INDUCTION THERAPY, 6 CYCLES)
  8. VINCRISTINE SULFATE. [Suspect]
     Active Substance: VINCRISTINE SULFATE
     Indication: MANTLE CELL LYMPHOMA
     Dosage: UNK, CYCLIC (FIRST-LINE INDUCTION THERAPY, 6 CYCLES)
  9. DOXORUBICIN HCL [Suspect]
     Active Substance: DOXORUBICIN HYDROCHLORIDE
     Indication: MANTLE CELL LYMPHOMA
     Dosage: UNK, CYCLIC (FIRST-LINE INDUCTION THERAPY, 6 CYCLES)
  10. CISPLATIN. [Suspect]
     Active Substance: CISPLATIN
     Indication: MANTLE CELL LYMPHOMA
     Dosage: UNK, CYCLIC (FIRST-LINE INDUCTION THERAPY, 6 CYCLES)
  11. ETOPOSIDE. [Concomitant]
     Active Substance: ETOPOSIDE
     Indication: MANTLE CELL LYMPHOMA
     Dosage: 200 MG/M2, DAY 1-3

REACTIONS (1)
  - Renal impairment [Unknown]
